FAERS Safety Report 11339344 (Version 7)
Quarter: 2018Q2

REPORT INFORMATION
  Report Type: Report from Study
  Country: AR (occurrence: AR)
  Receive Date: 20150805
  Receipt Date: 20180623
  Transmission Date: 20180711
  Serious: Yes (Hospitalization, Other)
  Sender: FDA-Public Use
  Company Number: PHHY2015AR092405

PATIENT
  Age: 71 Year
  Sex: Female

DRUGS (12)
  1. EXFORGE [Suspect]
     Active Substance: AMLODIPINE BESYLATE\VALSARTAN
     Indication: PRODUCT USED FOR UNKNOWN INDICATION
     Dosage: (AMLODIPINE 5, VALSARTAN 320, UNITS NOT REPORTED)
     Route: 065
  2. LEVOTHYROXINE. [Concomitant]
     Active Substance: LEVOTHYROXINE
     Indication: PRODUCT USED FOR UNKNOWN INDICATION
     Dosage: 150 MG, (6 DAYS A WEEK ONLY)
     Route: 065
  3. DIOVAN [Suspect]
     Active Substance: VALSARTAN
     Indication: HYPERTENSION
     Dosage: 1 DF (160, UNITS NOT REPORTED), QD
     Route: 065
  4. NABILA [Concomitant]
     Indication: PRODUCT USED FOR UNKNOWN INDICATION
     Dosage: 5 MG, QD
     Route: 065
  5. DIOVAN D [Suspect]
     Active Substance: HYDROCHLOROTHIAZIDE\VALSARTAN
     Dosage: 1 DF  (VALSARTAN 320 MG AND HYDROCHLOROTHIAZIDE 25 MG), QD
     Route: 065
     Dates: start: 20151001
  6. DIOVAN D [Suspect]
     Active Substance: HYDROCHLOROTHIAZIDE\VALSARTAN
     Indication: HYPERTENSION
     Dosage: 1 DF, QD (VALSARTAN 320 MG AND HYDROCHLOROTHIAZIDE 25 MG)
     Route: 065
     Dates: start: 2012
  7. DIOVAN D [Suspect]
     Active Substance: HYDROCHLOROTHIAZIDE\VALSARTAN
     Dosage: 1.5 DF, QD
     Route: 065
     Dates: start: 20150429
  8. DIOVAN D [Suspect]
     Active Substance: HYDROCHLOROTHIAZIDE\VALSARTAN
     Dosage: 1 DF, QD (VALSARTAN 320 MG AND HYDROCHLOROTHIAZIDE 25 MG)
     Route: 065
     Dates: start: 20130712
  9. DIOVAN D [Suspect]
     Active Substance: HYDROCHLOROTHIAZIDE\VALSARTAN
     Dosage: 1 DF, QD, (VALSARTAN 320 MG AND HYDROCHLOROTHIAZIDE 25 MG)
     Route: 065
     Dates: end: 20151001
  10. DICLOFENAC [Concomitant]
     Active Substance: DICLOFENAC
     Indication: OSTEOARTHRITIS
     Dosage: UNK UNK, PRN
     Route: 065
  11. ASPIRIN. [Concomitant]
     Active Substance: ASPIRIN
     Indication: PRODUCT USED FOR UNKNOWN INDICATION
     Dosage: UNK UNK, QD
     Route: 065
  12. DICLOFENAC [Concomitant]
     Active Substance: DICLOFENAC
     Indication: PAIN

REACTIONS (10)
  - Breast swelling [Recovered/Resolved]
  - Breast cancer [Recovered/Resolved]
  - Thyroid mass [Recovering/Resolving]
  - Breast injury [Recovered/Resolved]
  - Breast haematoma [Recovered/Resolved]
  - Blood pressure increased [Recovered/Resolved]
  - Nervousness [Recovered/Resolved]
  - Wrong technique in product usage process [Unknown]
  - Peripheral swelling [Recovering/Resolving]
  - Inappropriate schedule of drug administration [Unknown]

NARRATIVE: CASE EVENT DATE: 20150315
